FAERS Safety Report 12545210 (Version 5)
Quarter: 2016Q3

REPORT INFORMATION
  Report Type: Spontaneous
  Country: US (occurrence: US)
  Receive Date: 20160711
  Receipt Date: 20160906
  Transmission Date: 20161109
  Serious: Yes (Hospitalization)
  Sender: FDA-Public Use
  Company Number: US-JNJFOC-20160706818

PATIENT
  Age: 32 Year
  Sex: Male
  Weight: 104.33 kg

DRUGS (4)
  1. RISPERIDONE. [Suspect]
     Active Substance: RISPERIDONE
     Indication: PSYCHOTIC DISORDER
     Route: 048
  2. RISPERIDONE. [Suspect]
     Active Substance: RISPERIDONE
     Indication: PSYCHOTIC DISORDER
     Dosage: DOSE: 3 MG AT NIGHT, 1 MG IN MORNING
     Route: 048
  3. RISPERIDONE. [Suspect]
     Active Substance: RISPERIDONE
     Indication: PSYCHOTIC DISORDER
     Dosage: DOSE: 2 MG AT NIGHT, 1 MG IN MORNING
     Route: 048
  4. RISPERDAL CONSTA [Suspect]
     Active Substance: RISPERIDONE
     Indication: PSYCHOTIC DISORDER
     Route: 030
     Dates: start: 20160607

REACTIONS (7)
  - Inappropriate schedule of drug administration [Unknown]
  - Tremor [Unknown]
  - Increased appetite [Unknown]
  - Akathisia [Unknown]
  - Nonspecific reaction [Unknown]
  - Hospitalisation [Unknown]
  - Psychotic disorder [Recovering/Resolving]

NARRATIVE: CASE EVENT DATE: 201606
